FAERS Safety Report 11614078 (Version 4)
Quarter: 2016Q4

REPORT INFORMATION
  Report Type: Report from Study
  Country: US (occurrence: US)
  Receive Date: 20151008
  Receipt Date: 20161111
  Transmission Date: 20170206
  Serious: Yes (Other)
  Sender: FDA-Public Use
  Company Number: PHHY2015US115146

PATIENT
  Age: 39 Year
  Sex: Female
  Weight: 82.55 kg

DRUGS (9)
  1. IMITREX [Concomitant]
     Active Substance: SUMATRIPTAN SUCCINATE
     Indication: MIGRAINE
     Dosage: 100 MG, PRN
     Route: 048
     Dates: start: 2014
  2. DIVALPROEX [Concomitant]
     Active Substance: DIVALPROEX SODIUM
     Indication: MIGRAINE
     Dosage: 250 MG, QD (QHS)
     Route: 048
     Dates: start: 2013, end: 2014
  3. LEXAPRO [Concomitant]
     Active Substance: ESCITALOPRAM OXALATE
     Indication: DEPRESSION
     Dosage: 30 MG, QD
     Route: 048
     Dates: start: 2014
  4. GABAPENTIN. [Concomitant]
     Active Substance: GABAPENTIN
     Indication: MIGRAINE
     Dosage: 600 MG, TID
     Route: 048
     Dates: start: 2007
  5. PROMETHAZINE [Concomitant]
     Active Substance: PROMETHAZINE\PROMETHAZINE HYDROCHLORIDE
     Indication: GASTROOESOPHAGEAL REFLUX DISEASE
     Dosage: 25 MG, PRN
     Route: 048
     Dates: start: 2013
  6. ATIVAN [Concomitant]
     Active Substance: LORAZEPAM
     Indication: ANXIETY
     Dosage: 1 MG, QD
     Route: 048
     Dates: start: 2014
  7. AMBIEN [Concomitant]
     Active Substance: ZOLPIDEM TARTRATE
     Indication: INSOMNIA
     Dosage: 5 MG, PRN
     Route: 048
     Dates: start: 2014
  8. GILENYA [Suspect]
     Active Substance: FINGOLIMOD HYDROCHLORIDE
     Indication: RELAPSING-REMITTING MULTIPLE SCLEROSIS
     Dosage: 0.5 MG, QD
     Route: 048
     Dates: start: 20150604
  9. MAXALT [Concomitant]
     Active Substance: RIZATRIPTAN BENZOATE
     Indication: MIGRAINE
     Dosage: 10 MG, PRN
     Route: 048
     Dates: start: 2013

REACTIONS (1)
  - Maternal exposure during pregnancy [Recovered/Resolved]

NARRATIVE: CASE EVENT DATE: 20150918
